FAERS Safety Report 18973903 (Version 2)
Quarter: 2021Q2

REPORT INFORMATION
  Report Type: Spontaneous
  Country: US (occurrence: US)
  Receive Date: 20210305
  Receipt Date: 20210420
  Transmission Date: 20210717
  Serious: Yes (Death, Life-Threatening, Hospitalization, Other)
  Sender: FDA-Public Use
  Company Number: US-LUNDBECK-DKLU3029688

PATIENT
  Age: 78 Year
  Sex: Male

DRUGS (3)
  1. NORTHERA [Suspect]
     Active Substance: DROXIDOPA
     Indication: ORTHOSTATIC HYPOTENSION
     Route: 048
     Dates: start: 20190515
  2. FLORINEF ACETATE [Suspect]
     Active Substance: FLUDROCORTISONE ACETATE
     Indication: ORTHOSTATIC HYPOTENSION
     Route: 065
  3. NORTHERA [Suspect]
     Active Substance: DROXIDOPA
     Indication: PARKINSON^S DISEASE
     Route: 048
     Dates: start: 20200620

REACTIONS (12)
  - Pulseless electrical activity [Recovered/Resolved]
  - Respiratory distress [Unknown]
  - Death [Fatal]
  - Hypoxia [Unknown]
  - Pyrexia [Unknown]
  - Vomiting [Unknown]
  - Hypotension [Unknown]
  - Unresponsive to stimuli [Unknown]
  - Encephalopathy [Unknown]
  - Anaemia [Unknown]
  - Seizure like phenomena [Unknown]
  - Pneumonia aspiration [Unknown]

NARRATIVE: CASE EVENT DATE: 202101
